FAERS Safety Report 9536209 (Version 1)
Quarter: 2013Q3

REPORT INFORMATION
  Report Type: Spontaneous
  Country: US (occurrence: US)
  Receive Date: 20130919
  Receipt Date: 20130919
  Transmission Date: 20140515
  Serious: No
  Sender: FDA-Public Use
  Company Number: US-PFIZER INC-2013265627

PATIENT
  Age: 65 Year
  Sex: Female
  Weight: 86.17 kg

DRUGS (6)
  1. NIFEDIPINE [Suspect]
     Indication: CHEST PAIN
     Dosage: 60 MG, 1X/DAY
     Dates: start: 201306
  2. NIFEDIPINE [Suspect]
     Dosage: HALF TABLET OF 60 MG IN MORNING AND HALF TABLET OF 60 MG IN EVENING (2X/DAY)
     Dates: start: 2013
  3. BUMEX [Suspect]
     Indication: OEDEMA
     Dosage: 1 MG, 2X/DAY
  4. LISINOPRIL [Concomitant]
     Indication: HYPERTENSION
     Dosage: 10 MG, 2X/DAY
  5. HYDRALAZINE [Concomitant]
     Indication: HYPERTENSION
     Dosage: 50 MG, 2X/DAY
  6. COREG [Concomitant]
     Indication: HYPERTENSION
     Dosage: 25 MG, 2X/DAY

REACTIONS (3)
  - Oedema peripheral [Not Recovered/Not Resolved]
  - Blood potassium decreased [Unknown]
  - Off label use [Unknown]
